FAERS Safety Report 9341657 (Version 1)
Quarter: 2013Q2

REPORT INFORMATION
  Report Type: Spontaneous
  Country: US (occurrence: None)
  Receive Date: 20130606
  Receipt Date: 20130606
  Transmission Date: 20140414
  Serious: Yes (Hospitalization, Other)
  Sender: FDA-Public Use
  Company Number: CIP11000525

PATIENT
  Age: 71 Year
  Sex: Female
  Weight: 66.7 kg

DRUGS (3)
  1. ACTONEL [Suspect]
     Route: 048
  2. ALENDRONATE (ALENDRONATE SODIUM) [Suspect]
     Route: 048
     Dates: start: 200804, end: 201009
  3. FOSAMAX (ALENDRONATE SODIUM) [Suspect]
     Route: 048
     Dates: start: 200805

REACTIONS (10)
  - Fall [None]
  - Femur fracture [None]
  - Fracture displacement [None]
  - Comminuted fracture [None]
  - Pathological fracture [None]
  - Iatrogenic injury [None]
  - Fracture delayed union [None]
  - Bursitis [None]
  - Foot fracture [None]
  - Impaired healing [None]
